FAERS Safety Report 14974968 (Version 2)
Quarter: 2018Q2

REPORT INFORMATION
  Report Type: Spontaneous
  Country: JP (occurrence: JP)
  Receive Date: 20180605
  Receipt Date: 20180614
  Transmission Date: 20180711
  Serious: Yes (Other)
  Sender: FDA-Public Use
  Company Number: JP-JNJFOC-20180541599

PATIENT

DRUGS (1)
  1. INFLIXIMAB, RECOMBINANT [Suspect]
     Active Substance: INFLIXIMAB
     Indication: BEHCET^S SYNDROME
     Route: 042

REACTIONS (5)
  - Infusion related reaction [Unknown]
  - Dermatitis psoriasiform [Unknown]
  - Anaphylactic shock [Unknown]
  - Antiphospholipid syndrome [Unknown]
  - Cellulitis [Unknown]
